FAERS Safety Report 7372012-X (Version None)
Quarter: 2011Q1

REPORT INFORMATION
  Report Type: 
  Country: None (occurrence: None)
  Receive Date: 20110225
  Receipt Date: 20101111
  Transmission Date: 20110831
  Serious: No
  Sender: FDA-Public Use
  Company Number: 319646

PATIENT
  Age: 61 Year
  Sex: Female

DRUGS (2)
  1. VICTOZA [Suspect]
     Indication: TYPE 2 DIABETES MELLITUS
     Dosage: 1.8 MG, QD, SUBCUTANEOUS, 1.2 U, QD, SUBCUTANEOUS
     Route: 058
  2. VICTOZA [Suspect]
     Indication: DECREASED APPETITE
     Dosage: 1.8 MG, QD, SUBCUTANEOUS, 1.2 U, QD, SUBCUTANEOUS
     Route: 058

REACTIONS (4)
  - ERUCTATION [None]
  - FLATULENCE [None]
  - DECREASED APPETITE [None]
  - HYPERCHLORHYDRIA [None]
